FAERS Safety Report 15484782 (Version 2)
Quarter: 2018Q4

REPORT INFORMATION
  Report Type: Spontaneous
  Country: IT (occurrence: IT)
  Receive Date: 20181010
  Receipt Date: 20181017
  Transmission Date: 20190205
  Serious: Yes (Hospitalization, Other)
  Sender: FDA-Public Use
  Company Number: IT-WARNER CHILCOTT-CIP05000687

PATIENT
  Age: 57 Year
  Sex: Male

DRUGS (6)
  1. STEROIDS [Concomitant]
     Active Substance: UNSPECIFIED INGREDIENT
     Indication: COLITIS ULCERATIVE
     Dosage: UNK
     Route: 048
  2. CYCLOSPORINE. [Concomitant]
     Active Substance: CYCLOSPORINE
     Indication: STEROID ACTIVITY
     Dosage: UNK
     Dates: start: 199710, end: 199909
  3. MESALAZINE UNK [Suspect]
     Active Substance: MESALAMINE
     Indication: COLITIS ULCERATIVE
     Dosage: 800 MG, TID
     Route: 048
     Dates: start: 199611, end: 199711
  4. MESALAZINE UNK [Suspect]
     Active Substance: MESALAMINE
     Indication: COLITIS ULCERATIVE
     Dosage: UNK
     Route: 061
     Dates: start: 199410, end: 199711
  5. MESALAZINE UNK [Suspect]
     Active Substance: MESALAMINE
     Dosage: 800 MG, BID
     Route: 048
     Dates: start: 199410, end: 199611
  6. AZATHIOPRINE. [Concomitant]
     Active Substance: AZATHIOPRINE
     Indication: COLITIS
     Dosage: UNK
     Dates: start: 199603, end: 199607

REACTIONS (15)
  - Respiratory distress [Recovered/Resolved]
  - Pneumonitis [Recovered/Resolved]
  - Arthritis [Recovered/Resolved]
  - Pyrexia [Recovered/Resolved]
  - Cough [Recovered/Resolved]
  - Cryptogenic cirrhosis [Recovered/Resolved]
  - Chest pain [Recovered/Resolved]
  - Colitis ulcerative [Recovered/Resolved]
  - Toxicity to various agents [Recovered/Resolved]
  - Lung disorder [Recovered/Resolved]
  - Breath sounds abnormal [Recovered/Resolved]
  - Dyspnoea [Recovered/Resolved]
  - Connective tissue disorder [Recovered/Resolved]
  - Hepatomegaly [Recovered/Resolved]
  - Dyspnoea at rest [Recovered/Resolved]

NARRATIVE: CASE EVENT DATE: 199507
